FAERS Safety Report 12059045 (Version 1)
Quarter: 2016Q1

REPORT INFORMATION
  Report Type: Spontaneous
  Country: US (occurrence: US)
  Receive Date: 20160209
  Receipt Date: 20160209
  Transmission Date: 20160526
  Serious: No
  Sender: FDA-Public Use
  Company Number: US-TEVA-632063ACC

PATIENT
  Age: 30 Year
  Sex: Female
  Weight: 97.61 kg

DRUGS (3)
  1. OMEGA-3 ACIDS [Concomitant]
     Active Substance: OMEGA-3 FATTY ACIDS
     Indication: SUPPLEMENTATION THERAPY
  2. PLAN B ONE-STEP [Suspect]
     Active Substance: LEVONORGESTREL
     Indication: POST COITAL CONTRACEPTION
     Dates: start: 20151119, end: 20151119
  3. PLEXUS [Concomitant]
     Indication: MENSTRUATION IRREGULAR

REACTIONS (3)
  - Menstruation delayed [Not Recovered/Not Resolved]
  - Hypomenorrhoea [Recovered/Resolved]
  - Vaginal haemorrhage [Recovered/Resolved]

NARRATIVE: CASE EVENT DATE: 20151128
